FAERS Safety Report 14361432 (Version 1)
Quarter: 2018Q1

REPORT INFORMATION
  Report Type: Spontaneous
  Country: JP (occurrence: JP)
  Receive Date: 20180108
  Receipt Date: 20180108
  Transmission Date: 20180509
  Serious: Yes (Other)
  Sender: FDA-Public Use
  Company Number: JP-ACCORD-062611

PATIENT
  Age: 88 Year
  Sex: Female

DRUGS (3)
  1. FUROSEMIDE. [Suspect]
     Active Substance: FUROSEMIDE
     Indication: DIURETIC THERAPY
  2. ACETYLSALICYLIC ACID [Concomitant]
     Active Substance: ASPIRIN
  3. CANDESARTAN. [Concomitant]
     Active Substance: CANDESARTAN

REACTIONS (2)
  - Gouty arthritis [Unknown]
  - Nodal osteoarthritis [Unknown]
